FAERS Safety Report 20436392 (Version 1)
Quarter: 2022Q1

REPORT INFORMATION
  Report Type: Spontaneous
  Country: PT (occurrence: PT)
  Receive Date: 20220207
  Receipt Date: 20220207
  Transmission Date: 20220423
  Serious: Yes (Hospitalization, Other)
  Sender: FDA-Public Use
  Company Number: PT-TEVA-2022-PT-1999147

PATIENT
  Age: 65 Year
  Sex: Female

DRUGS (2)
  1. DOCETAXEL [Suspect]
     Active Substance: DOCETAXEL
     Route: 065
  2. GEMCITABINE [Concomitant]
     Active Substance: GEMCITABINE
     Route: 065

REACTIONS (3)
  - Pancytopenia [Unknown]
  - Hepatic function abnormal [Unknown]
  - Renal impairment [Unknown]
